FAERS Safety Report 22093962 (Version 1)
Quarter: 2023Q1

REPORT INFORMATION
  Report Type: Spontaneous
  Country: US (occurrence: None)
  Receive Date: 20230314
  Receipt Date: 20230314
  Transmission Date: 20230418
  Serious: No
  Sender: FDA-Public Use
  Company Number: None

PATIENT
  Age: 63 Year
  Sex: Female
  Weight: 79.65 kg

DRUGS (3)
  1. ESTRADIOL [Suspect]
     Active Substance: ESTRADIOL
     Indication: Oestrogen deficiency
     Dosage: OTHER FREQUENCY : TWICE/WEEK;?
     Route: 067
  2. NP THYROID [Concomitant]
     Active Substance: LEVOTHYROXINE\LIOTHYRONINE
  3. PREMARIN CRE [Concomitant]

REACTIONS (5)
  - Fatigue [None]
  - Dysuria [None]
  - Irritability [None]
  - Drug ineffective [None]
  - Malabsorption from application site [None]
